FAERS Safety Report 7445438-3 (Version None)
Quarter: 2011Q2

REPORT INFORMATION
  Report Type: 
  Country: None (occurrence: None)
  Receive Date: 20110429
  Receipt Date: 20110425
  Transmission Date: 20111010
  Serious: Yes (Life-Threatening)
  Sender: FDA-Public Use
  Company Number: JP-PFIZER INC-2011071944

PATIENT
  Age: 80 Year
  Sex: Female

DRUGS (9)
  1. BLOPRESS [Concomitant]
     Indication: HYPERTENSION
     Dosage: UNK
     Route: 048
     Dates: start: 20021029
  2. OPALMON [Concomitant]
     Indication: LUMBAR SPINAL STENOSIS
     Dosage: UNK
     Route: 048
     Dates: start: 20090401
  3. TAKEPRON [Concomitant]
     Dosage: UNK
     Route: 048
     Dates: start: 20040203
  4. NIVADIL [Concomitant]
     Indication: HYPERTENSION
     Dosage: UNK
     Route: 048
     Dates: start: 20021029
  5. LAC B [Concomitant]
     Dosage: UNK
     Dates: start: 20060801
  6. MUCOSTA [Concomitant]
     Dosage: UNK
     Route: 048
     Dates: start: 20090401
  7. MAGNESIUM OXIDE [Concomitant]
     Dosage: UNK
     Dates: start: 20060801
  8. CELECOX [Suspect]
     Indication: BACK PAIN
     Dosage: 100 MG, 2X/DAY
     Route: 048
     Dates: start: 20100921, end: 20110101
  9. DEPAS [Concomitant]
     Dosage: UNK
     Route: 048
     Dates: start: 20020903

REACTIONS (1)
  - PARKINSONISM [None]
